FAERS Safety Report 23571176 (Version 2)
Quarter: 2024Q3

REPORT INFORMATION
  Report Type: Spontaneous
  Country: FR (occurrence: FR)
  Receive Date: 20240227
  Receipt Date: 20240702
  Transmission Date: 20241016
  Serious: Yes (Death, Other)
  Sender: SANDOZ
  Company Number: FR-PFIZER INC-PV202300202423

PATIENT
  Age: 3 Year
  Sex: Male
  Weight: 14.5 kg

DRUGS (5)
  1. CYCLOPHOSPHAMIDE [Suspect]
     Active Substance: CYCLOPHOSPHAMIDE
     Dosage: UNK
     Route: 065
  2. CYCLOPHOSPHAMIDE [Suspect]
     Active Substance: CYCLOPHOSPHAMIDE
     Indication: Neuroblastoma
     Dosage: UNK, CYCLIC (CYCLE 2)
     Route: 065
     Dates: start: 20231027
  3. LORLATINIB [Suspect]
     Active Substance: LORLATINIB
     Indication: Neuroblastoma
     Dosage: UNK
     Route: 065
     Dates: start: 20231027
  4. TOPOTECAN HYDROCHLORIDE [Suspect]
     Active Substance: TOPOTECAN HYDROCHLORIDE
     Indication: Neuroblastoma
     Dosage: UNK
     Route: 065
  5. TOPOTECAN HYDROCHLORIDE [Suspect]
     Active Substance: TOPOTECAN HYDROCHLORIDE
     Dosage: UNK, CYCLIC (CYCLE 2)
     Route: 065
     Dates: start: 20231027

REACTIONS (11)
  - Neoplasm progression [Fatal]
  - Thrombocytopenia [Unknown]
  - Superinfection [Unknown]
  - Haemorrhage [Unknown]
  - Congenital aplasia [Unknown]
  - Blood cholesterol increased [Unknown]
  - Herpes zoster [Recovering/Resolving]
  - Rash vesicular [Recovering/Resolving]
  - Blood triglycerides increased [Unknown]
  - Off label use [Unknown]
  - Off label use [Unknown]

NARRATIVE: CASE EVENT DATE: 20230101
